FAERS Safety Report 8924901 (Version 2)
Quarter: 2013Q1

REPORT INFORMATION
  Report Type: Spontaneous
  Country: BE (occurrence: BE)
  Receive Date: 20121126
  Receipt Date: 20130102
  Transmission Date: 20140127
  Serious: Yes (Other)
  Sender: FDA-Public Use
  Company Number: BE-ASTRAZENECA-2012SE85300

PATIENT
  Age: 974 Month
  Sex: Male
  Weight: 75 kg

DRUGS (3)
  1. CRESTOR [Suspect]
     Route: 048
     Dates: start: 201207
  2. LISINOPRIL [Concomitant]
     Route: 048
     Dates: start: 2000
  3. MONTELUKAST [Concomitant]
     Dates: start: 201010

REACTIONS (1)
  - Renal failure [Unknown]
